FAERS Safety Report 13044258 (Version 1)
Quarter: 2016Q4

REPORT INFORMATION
  Report Type: Spontaneous
  Country: US (occurrence: US)
  Receive Date: 20161220
  Receipt Date: 20161220
  Transmission Date: 20170207
  Serious: No
  Sender: FDA-Public Use
  Company Number: US-ROCHE-1034665

PATIENT
  Age: 55 Year
  Sex: Male
  Weight: 82.17 kg

DRUGS (2)
  1. ZELBORAF [Suspect]
     Active Substance: VEMURAFENIB
     Indication: MALIGNANT MELANOMA
     Route: 048
     Dates: start: 20111227
  2. ZELBORAF [Suspect]
     Active Substance: VEMURAFENIB
     Route: 065

REACTIONS (5)
  - Fatigue [Recovering/Resolving]
  - Arthralgia [Recovering/Resolving]
  - Melanocytic naevus [Recovering/Resolving]
  - Myalgia [Recovering/Resolving]
  - Headache [Recovering/Resolving]

NARRATIVE: CASE EVENT DATE: 20120203
